FAERS Safety Report 8174417-6 (Version None)
Quarter: 2012Q1

REPORT INFORMATION
  Report Type: 
  Country: None (occurrence: None)
  Receive Date: 20120229
  Receipt Date: 20120221
  Transmission Date: 20120608
  Serious: Yes (Hospitalization)
  Sender: FDA-Public Use
  Company Number: ES-ELI_LILLY_AND_COMPANY-ES201202007013

PATIENT
  Sex: Female
  Weight: 69 kg

DRUGS (4)
  1. FORTEO [Suspect]
     Indication: OSTEOPOROSIS
     Dosage: 20 UG, QD
     Route: 058
     Dates: start: 20111207
  2. HEPARIN [Concomitant]
     Dosage: UNK UNK, QD
     Route: 058
  3. ANTIBIOTICS [Concomitant]
     Dosage: UNK, EVERY 8 HRS
     Route: 048
  4. IBUPROFENO [Concomitant]
     Indication: PAIN
     Dosage: UNK, PRN
     Route: 048

REACTIONS (1)
  - ANKLE FRACTURE [None]
